FAERS Safety Report 12213756 (Version 1)
Quarter: 2016Q1

REPORT INFORMATION
  Report Type: Spontaneous
  Country: SG (occurrence: SG)
  Receive Date: 20160328
  Receipt Date: 20160328
  Transmission Date: 20160526
  Serious: Yes (Other)
  Sender: FDA-Public Use
  Company Number: SG-SA-2016SA057636

PATIENT
  Age: 45 Year
  Sex: Female

DRUGS (1)
  1. FEXOFENADINE [Suspect]
     Active Substance: FEXOFENADINE\FEXOFENADINE HYDROCHLORIDE
     Route: 065

REACTIONS (3)
  - Rash [Unknown]
  - Face oedema [Unknown]
  - Palpitations [Unknown]

NARRATIVE: CASE EVENT DATE: 20160204
